FAERS Safety Report 5505076-6 (Version None)
Quarter: 2007Q4

REPORT INFORMATION
  Report Type: 
  Country: None (occurrence: None)
  Receive Date: 20071031
  Receipt Date: 20071031
  Transmission Date: 20080405
  Serious: Yes (Hospitalization)
  Sender: FDA-Public Use
  Company Number: None

PATIENT
  Age: 5 Month
  Sex: Female
  Weight: 7 kg

DRUGS (1)
  1. CEFTRIAXONE [Suspect]
     Indication: SALMONELLA BACTERAEMIA
     Dosage: 250MG  DAILY  IV
     Route: 042
     Dates: start: 20070925, end: 20071029

REACTIONS (3)
  - CHOLELITHIASIS [None]
  - FEEDING DISORDER OF INFANCY OR EARLY CHILDHOOD [None]
  - IRRITABILITY [None]
